FAERS Safety Report 20642935 (Version 1)
Quarter: 2022Q1

REPORT INFORMATION
  Report Type: Spontaneous
  Country: US (occurrence: None)
  Receive Date: 20220325
  Receipt Date: 20220325
  Transmission Date: 20220423
  Serious: Yes (Other)
  Sender: FDA-Public Use
  Company Number: None

PATIENT
  Age: 56 Year
  Sex: Female

DRUGS (1)
  1. CAPECITABINE [Suspect]
     Active Substance: CAPECITABINE
     Indication: Colorectal cancer
     Dosage: FREQUENCY : TWICE A DAY;?
     Route: 048
     Dates: start: 202202

REACTIONS (16)
  - Therapy interrupted [None]
  - Blepharospasm [None]
  - Lacrimation increased [None]
  - Herpes zoster [None]
  - Feeling cold [None]
  - Pain [None]
  - Jaw disorder [None]
  - Paraesthesia oral [None]
  - Hypoaesthesia [None]
  - Pharyngeal disorder [None]
  - Immune system disorder [None]
  - Diarrhoea [None]
  - Brain oedema [None]
  - Muscle tightness [None]
  - Swelling [None]
  - Nerve compression [None]

NARRATIVE: CASE EVENT DATE: 20220321
